FAERS Safety Report 18329548 (Version 1)
Quarter: 2020Q3

REPORT INFORMATION
  Report Type: Spontaneous
  Country: US (occurrence: US)
  Receive Date: 20200930
  Receipt Date: 20200930
  Transmission Date: 20201103
  Serious: No
  Sender: FDA-Public Use
  Company Number: US-PFIZER INC-2020375408

PATIENT
  Age: 67 Year
  Sex: Male
  Weight: 77.11 kg

DRUGS (2)
  1. XELJANZ XR [Suspect]
     Active Substance: TOFACITINIB CITRATE
     Indication: ARTHRALGIA
  2. XELJANZ XR [Suspect]
     Active Substance: TOFACITINIB CITRATE
     Indication: NEURALGIA
     Dosage: 11 MG, DAILY

REACTIONS (2)
  - Gastric disorder [Unknown]
  - Gastrointestinal disorder [Unknown]
